FAERS Safety Report 4963844-3 (Version None)
Quarter: 2006Q1

REPORT INFORMATION
  Report Type: 
  Country: None (occurrence: None)
  Receive Date: 20060330
  Receipt Date: 20060308
  Transmission Date: 20060701
  Serious: Yes (Hospitalization)
  Sender: FDA-Public Use
  Company Number: US_030393137

PATIENT
  Age: 8 Year
  Sex: Male

DRUGS (1)
  1. SOMATROPIN (SOMATROPIN) [Suspect]
     Indication: GROWTH HORMONE DEFICIENCY

REACTIONS (6)
  - CONDITION AGGRAVATED [None]
  - FAILURE TO THRIVE [None]
  - HYPOPROTEINAEMIA [None]
  - LEUKOPLAKIA ORAL [None]
  - NAIL DYSTROPHY [None]
  - SKIN HYPERPIGMENTATION [None]
